FAERS Safety Report 4403416-2 (Version None)
Quarter: 2004Q3

REPORT INFORMATION
  Report Type: 
  Country: None (occurrence: None)
  Receive Date: 20040716
  Receipt Date: 20040703
  Transmission Date: 20050211
  Serious: Yes (Hospitalization, Other)
  Sender: FDA-Public Use
  Company Number: 2004223038US

PATIENT
  Sex: Male

DRUGS (1)
  1. NICOTROL [Suspect]
     Indication: SMOKING CESSATION THERAPY
     Dosage: TRANSDERMAL
     Route: 062

REACTIONS (5)
  - BLOOD PRESSURE DECREASED [None]
  - DEPRESSION [None]
  - LOSS OF CONSCIOUSNESS [None]
  - NERVOUSNESS [None]
  - TREMOR [None]
